FAERS Safety Report 8413553-3 (Version None)
Quarter: 2012Q2

REPORT INFORMATION
  Report Type: 
  Country: None (occurrence: None)
  Receive Date: 20120605
  Receipt Date: 20120524
  Transmission Date: 20120825
  Serious: Yes (Life-Threatening)
  Sender: FDA-Public Use
  Company Number: FR-GLAXOSMITHKLINE-B0796847A

PATIENT
  Sex: Male

DRUGS (5)
  1. ARIXTRA [Suspect]
     Indication: PRODUCT USED FOR UNKNOWN INDICATION
     Dosage: 7.5MG PER DAY
     Route: 058
     Dates: start: 20120406, end: 20120407
  2. METRONIDAZOLE [Concomitant]
     Indication: LUNG INFECTION
     Dosage: 500MG THREE TIMES PER DAY
     Route: 042
     Dates: start: 20120407, end: 20120407
  3. TRAMADOL HCL [Concomitant]
     Dosage: 100MG THREE TIMES PER DAY
     Route: 042
     Dates: start: 20120407, end: 20120407
  4. ACETAMINOPHEN [Concomitant]
     Indication: LUNG INFECTION
     Dosage: 1G FOUR TIMES PER DAY
     Route: 042
     Dates: start: 20120406, end: 20120407
  5. CEFTRIAXONE [Concomitant]
     Indication: LUNG INFECTION
     Dosage: 2G PER DAY
     Route: 042
     Dates: start: 20120407, end: 20120407

REACTIONS (3)
  - CEREBRAL HAEMORRHAGE [None]
  - CEREBRAL HAEMATOMA [None]
  - CONVULSION [None]
